FAERS Safety Report 6463056-0 (Version None)
Quarter: 2009Q4

REPORT INFORMATION
  Report Type: 
  Country: None (occurrence: None)
  Receive Date: 20091123
  Receipt Date: 20091110
  Transmission Date: 20100525
  Serious: Yes (Hospitalization)
  Sender: FDA-Public Use
  Company Number: 232952J09USA

PATIENT
  Age: 61 Year
  Sex: Female

DRUGS (3)
  1. REBIF [Suspect]
     Indication: MULTIPLE SCLEROSIS
     Dosage: 44 MCG, 3 IN 1 WEEKS, SUBCUTANEOUS
     Route: 058
     Dates: start: 20081112
  2. BACLOFEN [Concomitant]
  3. CELEBREX [Concomitant]

REACTIONS (3)
  - FALL [None]
  - HAND FRACTURE [None]
  - PATELLA FRACTURE [None]
